FAERS Safety Report 11612053 (Version 3)
Quarter: 2015Q4

REPORT INFORMATION
  Report Type: Spontaneous
  Country: JP (occurrence: JP)
  Receive Date: 20151008
  Receipt Date: 20151120
  Transmission Date: 20160304
  Serious: Yes (Hospitalization)
  Sender: FDA-Public Use
  Company Number: JP-GLAXOSMITHKLINE-JP2015JPN141399

PATIENT
  Age: 22 Year
  Sex: Female
  Weight: 45 kg

DRUGS (3)
  1. UNKNOWN DRUG [Concomitant]
     Active Substance: UNSPECIFIED INGREDIENT
     Dosage: UNK
     Route: 050
     Dates: end: 20150928
  2. DUAC GEL [Suspect]
     Active Substance: BENZOYL PEROXIDE\CLINDAMYCIN PHOSPHATE
     Indication: ACNE
     Dosage: UNK, QD
     Route: 050
     Dates: start: 20150909, end: 20150921
  3. PYDOXAL [Concomitant]
     Active Substance: PYRIDOXAL
     Indication: ACNE
     Dosage: 20 MG, BID
     Dates: start: 20150909

REACTIONS (8)
  - Rash maculo-papular [Unknown]
  - Erythema [Unknown]
  - Rosacea [Unknown]
  - Swelling face [Unknown]
  - Application site pruritus [Unknown]
  - Urticaria [Unknown]
  - Pigmentation disorder [Unknown]
  - Dermatitis contact [Unknown]

NARRATIVE: CASE EVENT DATE: 20150920
